FAERS Safety Report 8052739-7 (Version None)
Quarter: 2012Q1

REPORT INFORMATION
  Report Type: 
  Country: None (occurrence: None)
  Receive Date: 20120111
  Receipt Date: 20100830
  Transmission Date: 20120608
  Serious: No
  Sender: FDA-Public Use
  Company Number: AECAN201000317

PATIENT
  Age: 48 Year
  Sex: Female

DRUGS (1)
  1. ALBUMINAR-25 [Suspect]
     Indication: HEPATIC CIRRHOSIS
     Dosage: 100 ML, TOTAL, IV
     Route: 042
     Dates: start: 20100724, end: 20100807

REACTIONS (2)
  - URINARY TRACT INFECTION FUNGAL [None]
  - CULTURE URINE POSITIVE [None]
